FAERS Safety Report 7357330-3 (Version None)
Quarter: 2011Q1

REPORT INFORMATION
  Report Type: 
  Country: None (occurrence: None)
  Receive Date: 20110308
  Receipt Date: 20110217
  Transmission Date: 20110831
  Serious: Yes (Other)
  Sender: FDA-Public Use
  Company Number: 20110146

PATIENT
  Age: 70 Year
  Sex: Female

DRUGS (2)
  1. EPINEPHRINE [Suspect]
     Indication: SPINAL ANAESTHESIA
     Dosage: 0.21 ML INTRATHECAL
     Route: 039
  2. BUPIVACAINE 0.75% [Suspect]
     Indication: SPINAL ANAESTHESIA
     Dosage: 2.0 ML INTRATHECAL
     Route: 039

REACTIONS (2)
  - PAIN IN EXTREMITY [None]
  - MUSCULAR WEAKNESS [None]
